FAERS Safety Report 4760189-1 (Version None)
Quarter: 2005Q3

REPORT INFORMATION
  Report Type: 
  Country: None (occurrence: None)
  Receive Date: 20050831
  Receipt Date: 20050831
  Transmission Date: 20060218
  Serious: No
  Sender: FDA-Public Use
  Company Number: None

PATIENT
  Age: 66 Year
  Sex: Female
  Weight: 87.1 kg

DRUGS (9)
  1. FUROSEMIDE 40MG/ML AMERICAN REGENT, INC. [Suspect]
     Indication: PULMONARY OEDEMA
     Dosage: 40 MG 1 DOSE IV BOLUS
     Route: 042
     Dates: start: 20050828, end: 20050828
  2. FUROSEMIDE 40MG/ML AMERICAN REGENT, INC. [Suspect]
     Dosage: 80 MG 1 DOSE IV BOLUS
     Route: 042
     Dates: start: 20050828, end: 20050828
  3. AMLODIPINE [Concomitant]
  4. ENOXAPARIN SODIUM [Concomitant]
  5. FERROUS SULFATE [Concomitant]
  6. METOPROLOL XL [Concomitant]
  7. MULTI-VIT [Concomitant]
  8. ALBUTEROL [Concomitant]
  9. SIMVASTATIN [Concomitant]

REACTIONS (2)
  - DYSPNOEA EXACERBATED [None]
  - OXYGEN SATURATION DECREASED [None]
